FAERS Safety Report 18089355 (Version 3)
Quarter: 2020Q4

REPORT INFORMATION
  Report Type: Spontaneous
  Country: US (occurrence: US)
  Receive Date: 20200729
  Receipt Date: 20201022
  Transmission Date: 20210113
  Serious: Yes (Life-Threatening, Other)
  Sender: FDA-Public Use
  Company Number: US-ELI_LILLY_AND_COMPANY-US202007010678

PATIENT
  Age: 35 Year
  Sex: Female

DRUGS (9)
  1. CYMBALTA [Suspect]
     Active Substance: DULOXETINE HYDROCHLORIDE
     Dosage: 30 MG, DAILY
     Route: 048
     Dates: start: 20200301
  2. CYMBALTA [Suspect]
     Active Substance: DULOXETINE HYDROCHLORIDE
     Indication: PROCEDURAL PAIN
     Dosage: 30 MG, DAILY
     Route: 048
     Dates: start: 2019
  3. CYMBALTA [Suspect]
     Active Substance: DULOXETINE HYDROCHLORIDE
     Dosage: 90 MG, DAILY
     Route: 048
     Dates: start: 202002
  4. CYMBALTA [Suspect]
     Active Substance: DULOXETINE HYDROCHLORIDE
     Dosage: 60 MG, DAILY
     Route: 048
     Dates: start: 20200201, end: 20200229
  5. CYMBALTA [Suspect]
     Active Substance: DULOXETINE HYDROCHLORIDE
     Indication: PROCEDURAL PAIN
     Dosage: 20 MG, BID
     Route: 048
     Dates: start: 20200416
  6. CYMBALTA [Suspect]
     Active Substance: DULOXETINE HYDROCHLORIDE
     Dosage: 15 MG, DAILY
     Route: 048
  7. CYMBALTA [Suspect]
     Active Substance: DULOXETINE HYDROCHLORIDE
     Dosage: UNK, DAILY (SLOWLY LESS AND LESS DOSE)
     Route: 048
  8. CYMBALTA [Suspect]
     Active Substance: DULOXETINE HYDROCHLORIDE
     Dosage: 60 MG, DAILY
     Route: 048
  9. CYMBALTA [Suspect]
     Active Substance: DULOXETINE HYDROCHLORIDE
     Dosage: 10 MG, DAILY
     Route: 048

REACTIONS (41)
  - Cardiac arrest [Recovered/Resolved]
  - Cardiac disorder [Unknown]
  - Mobility decreased [Unknown]
  - Arthralgia [Unknown]
  - Decreased appetite [Unknown]
  - Muscle rigidity [Unknown]
  - Drug withdrawal syndrome [Unknown]
  - Emotional distress [Unknown]
  - Myositis [Unknown]
  - Procedural pain [Unknown]
  - Bradycardia [Unknown]
  - Loss of consciousness [Unknown]
  - Spinal disorder [Unknown]
  - Drug-induced liver injury [Recovering/Resolving]
  - Fall [Unknown]
  - Wrong technique in product usage process [Unknown]
  - Cardiac failure acute [Unknown]
  - Suicidal ideation [Unknown]
  - Asthenia [Unknown]
  - Vomiting [Unknown]
  - Muscle injury [Unknown]
  - Pain [Unknown]
  - Dizziness [Unknown]
  - Syncope [Unknown]
  - Myalgia [Unknown]
  - Suicide attempt [Unknown]
  - Paraesthesia [Unknown]
  - Muscle strain [Unknown]
  - Dyspnoea [Unknown]
  - Fatigue [Unknown]
  - Anxiety [Unknown]
  - Off label use [Unknown]
  - Balance disorder [Unknown]
  - Limb injury [Unknown]
  - Fall [Unknown]
  - Hypoaesthesia [Unknown]
  - Chest pain [Unknown]
  - Palpitations [Unknown]
  - Nausea [Unknown]
  - Dehydration [Unknown]
  - Back pain [Unknown]

NARRATIVE: CASE EVENT DATE: 2019
